FAERS Safety Report 14336947 (Version 1)
Quarter: 2017Q4

REPORT INFORMATION
  Report Type: Spontaneous
  Country: US (occurrence: US)
  Receive Date: 20171228
  Receipt Date: 20171228
  Transmission Date: 20180321
  Serious: No
  Sender: FDA-Public Use
  Company Number: None

PATIENT
  Age: 76 Year
  Sex: Male
  Weight: 127.01 kg

DRUGS (1)
  1. JARDIANCE [Suspect]
     Active Substance: EMPAGLIFLOZIN

REACTIONS (5)
  - Musculoskeletal disorder [None]
  - Drug ineffective [None]
  - Candida infection [None]
  - Feeling abnormal [None]
  - Rash [None]
